FAERS Safety Report 25476791 (Version 1)
Quarter: 2025Q2

REPORT INFORMATION
  Report Type: Report from Study
  Country: US (occurrence: US)
  Receive Date: 20250625
  Receipt Date: 20250625
  Transmission Date: 20250716
  Serious: No
  Sender: SANDOZ
  Company Number: US-SANDOZ-SDZ2025US042963

PATIENT
  Sex: Male

DRUGS (2)
  1. OMNITROPE [Suspect]
     Active Substance: SOMATROPIN
     Indication: Short stature
     Dosage: 1.1 MG, QD; STRENGTH: 10 MG/1.5 ML
     Route: 058
     Dates: start: 20250509
  2. OMNITROPE [Suspect]
     Active Substance: SOMATROPIN
     Indication: Short stature
     Dosage: 1.1 MG, QD; STRENGTH: 10 MG/1.5 ML
     Route: 058
     Dates: start: 20250509

REACTIONS (1)
  - Injection site pain [Unknown]
